FAERS Safety Report 4764733-X (Version None)
Quarter: 2005Q3

REPORT INFORMATION
  Report Type: 
  Country: None (occurrence: None)
  Receive Date: 20050909
  Receipt Date: 20050607
  Transmission Date: 20060218
  Serious: Yes (Hospitalization)
  Sender: FDA-Public Use
  Company Number: US-MERCK-0506USA01428

PATIENT
  Age: 56 Year
  Sex: Male
  Weight: 92 kg

DRUGS (11)
  1. VIOXX [Suspect]
     Indication: ARTHRITIS
     Route: 048
     Dates: start: 20001117, end: 20041001
  2. ZOCOR [Concomitant]
     Route: 065
  3. LANSOPRAZOLE [Concomitant]
     Route: 065
  4. TAMSULOSIN HYDROCHLORIDE [Concomitant]
     Route: 065
  5. TAMSULOSIN HYDROCHLORIDE [Concomitant]
     Route: 065
  6. ETODOLAC [Concomitant]
     Route: 065
  7. HYDROCODONE HYDROCHLORIDE [Concomitant]
     Route: 065
  8. HYDROCHLOROTHIAZIDE [Concomitant]
     Route: 048
  9. [THERAPY UNSPECIFIED] [Concomitant]
     Route: 065
  10. [THERAPY UNSPECIFIED] [Concomitant]
     Route: 065
  11. [THERAPY UNSPECIFIED] [Concomitant]
     Route: 065

REACTIONS (6)
  - ARTHROPOD BITE [None]
  - CEREBROVASCULAR ACCIDENT [None]
  - GALLBLADDER DISORDER [None]
  - MEDICATION ERROR [None]
  - STAPHYLOCOCCAL SEPSIS [None]
  - TRANSIENT ISCHAEMIC ATTACK [None]
